FAERS Safety Report 9009332 (Version 1)
Quarter: 2013Q1

REPORT INFORMATION
  Report Type: Spontaneous
  Country: US (occurrence: US)
  Receive Date: 20130111
  Receipt Date: 20130111
  Transmission Date: 20140127
  Serious: Yes (Hospitalization, Other)
  Sender: FDA-Public Use
  Company Number: US-TEVA-379775USA

PATIENT
  Age: 65 Year
  Sex: Female

DRUGS (3)
  1. OCTREOTIDE [Suspect]
     Indication: GASTROINTESTINAL HAEMORRHAGE
     Dosage: INFUSION AT 50 MICROG/H
     Route: 050
  2. PROPOFOL [Suspect]
     Indication: SEDATIVE THERAPY
     Dosage: PROPOFOL DRIP
     Route: 065
  3. PANTOPRAZOLE [Concomitant]
     Dosage: 80MG IV BOLUS, THEN INFUSION AT 8 MG/H
     Route: 050

REACTIONS (2)
  - Cardiac arrest [Recovered/Resolved]
  - Bradycardia [Recovered/Resolved]
